FAERS Safety Report 6448805-X (Version None)
Quarter: 2009Q4

REPORT INFORMATION
  Report Type: 
  Country: None (occurrence: None)
  Receive Date: 20091119
  Receipt Date: 20091119
  Transmission Date: 20100525
  Serious: No
  Sender: FDA-Public Use
  Company Number: None

PATIENT
  Age: 12 Year
  Sex: Female

DRUGS (2)
  1. CREST PRO HEALTH OVAL RINSE [Suspect]
     Dosage: 500 MILLILITERS BOTTLE ONCE A DAY
     Dates: start: 20090701, end: 20091101
  2. AQUA FRSH TOOTHPASTE [Concomitant]

REACTIONS (1)
  - TOOTH DISCOLOURATION [None]
